FAERS Safety Report 5314301-6 (Version None)
Quarter: 2007Q2

REPORT INFORMATION
  Report Type: 
  Country: None (occurrence: None)
  Receive Date: 20070425
  Receipt Date: 20070412
  Transmission Date: 20071010
  Serious: Yes (Hospitalization)
  Sender: FDA-Public Use
  Company Number: 012424

PATIENT
  Age: 39 Year
  Sex: Female
  Weight: 68.5 kg

DRUGS (4)
  1. SEASONIQUE [Suspect]
     Indication: ORAL CONTRACEPTION
     Dosage: 1 TABLET, QD, ORAL
     Route: 048
     Dates: start: 20070222, end: 20070324
  2. PROTONIX [Concomitant]
  3. LORTAB [Concomitant]
  4. ZOFRAN [Concomitant]

REACTIONS (3)
  - CHEST PAIN [None]
  - MUSCULOSKELETAL PAIN [None]
  - PULMONARY EMBOLISM [None]
